FAERS Safety Report 24541265 (Version 1)
Quarter: 2024Q4

REPORT INFORMATION
  Report Type: Report from Study
  Country: DE (occurrence: DE)
  Receive Date: 20241023
  Receipt Date: 20241023
  Transmission Date: 20250115
  Serious: Yes (Other)
  Sender: ABBVIE
  Company Number: DE-ABBVIE-5795637

PATIENT
  Age: 73 Year
  Sex: Female
  Weight: 73 kg

DRUGS (21)
  1. FOSCARBIDOPA\FOSLEVODOPA [Suspect]
     Active Substance: FOSCARBIDOPA\FOSLEVODOPA
     Indication: Parkinson^s disease
     Dosage: SD: 0.6 ML; CRN: 0.15 ML/H, CR: 0.19 ML/H, CRH: 0.21 ML/H, ED: 0.1 ML
     Route: 058
     Dates: start: 20240527
  2. L-Thyroxin (Jod Aristo) [Concomitant]
     Indication: Thyroid disorder
     Dosage: 50 MCG/150 MCG
  3. Atorvastatin (1A Pharma) [Concomitant]
     Indication: Lipid metabolism disorder
  4. OPICAPONE [Concomitant]
     Active Substance: OPICAPONE
     Indication: Parkinson^s disease
  5. PREDNISOLONE [Concomitant]
     Active Substance: PREDNISOLONE
     Indication: Rheumatoid arthritis
     Dosage: 0.5 TABLET IN A DAY
  6. PREDNISOLONE [Concomitant]
     Active Substance: PREDNISOLONE
     Indication: Rheumatoid arthritis
  7. XARELTO [Concomitant]
     Active Substance: RIVAROXABAN
     Indication: Anticoagulant therapy
  8. AZILECT [Concomitant]
     Active Substance: RASAGILINE MESYLATE
     Indication: Parkinson^s disease
  9. LERCANIDIPINE HYDROCHLORIDE [Concomitant]
     Active Substance: LERCANIDIPINE HYDROCHLORIDE
     Indication: Blood pressure measurement
  10. Amantadin (1A Pharm) [Concomitant]
     Indication: Product used for unknown indication
  11. MTX (Hexal) [Concomitant]
     Indication: Rheumatoid arthritis
  12. Bisoprolol fumarat (1A Pharma) [Concomitant]
     Indication: Blood pressure measurement
  13. CHOLECALCIFEROL [Concomitant]
     Active Substance: CHOLECALCIFEROL
     Indication: Vitamin D deficiency
  14. Enalapril maleat (1A Pharma) [Concomitant]
     Indication: Blood pressure measurement
  15. FOLIC ACID [Concomitant]
     Active Substance: FOLIC ACID
     Indication: Rheumatoid arthritis
  16. Ibuprofen (Ratiopharm) [Concomitant]
     Indication: Pain
  17. Quetiapin (1A Pharm) [Concomitant]
     Indication: Product used for unknown indication
  18. Quetiapin (1A Pharm) [Concomitant]
     Indication: Product used for unknown indication
  19. MAGNESIUM [Concomitant]
     Active Substance: MAGNESIUM
     Indication: Magnesium deficiency
  20. LACTULOSE [Concomitant]
     Active Substance: LACTULOSE
     Indication: Pain
  21. LACTULOSE [Concomitant]
     Active Substance: LACTULOSE
     Indication: Pain

REACTIONS (10)
  - Skin necrosis [Not Recovered/Not Resolved]
  - Infusion site pain [Recovered/Resolved]
  - Dyskinesia [Unknown]
  - Swelling [Unknown]
  - Hallucination [Unknown]
  - Infusion site abscess [Recovered/Resolved]
  - Infusion site haematoma [Unknown]
  - Infusion site inflammation [Recovered/Resolved]
  - Infusion site erythema [Unknown]
  - Drug intolerance [Unknown]

NARRATIVE: CASE EVENT DATE: 20240101
